FAERS Safety Report 7740671-5 (Version None)
Quarter: 2011Q3

REPORT INFORMATION
  Report Type: 
  Country: None (occurrence: None)
  Receive Date: 20110909
  Receipt Date: 20110831
  Transmission Date: 20111222
  Serious: Yes (Death, Hospitalization)
  Sender: FDA-Public Use
  Company Number: ES-JNJFOC-20070501259

PATIENT
  Age: 72 Year
  Sex: Male
  Weight: 80 kg

DRUGS (5)
  1. INFLIXIMAB [Suspect]
     Indication: RHEUMATOID ARTHRITIS
     Dosage: DOSE WAS 240 (UNITS NOT PROVIDED)
     Route: 042
     Dates: start: 20040525, end: 20040714
  2. BENZODIAZEPINES NOS [Concomitant]
  3. GLUCOCORTICOIDS [Concomitant]
  4. LEFLUNOMIDE [Concomitant]
  5. ASPIRIN [Concomitant]

REACTIONS (1)
  - DISSEMINATED TUBERCULOSIS [None]
